FAERS Safety Report 8830467 (Version 2)
Quarter: 2013Q1

REPORT INFORMATION
  Report Type: Spontaneous
  Country: US (occurrence: US)
  Receive Date: 20121009
  Receipt Date: 20130122
  Transmission Date: 20140127
  Serious: Yes (Hospitalization)
  Sender: FDA-Public Use
  Company Number: US-BAYER-2012-104344

PATIENT
  Age: 28 Year
  Sex: Female
  Weight: 109 kg

DRUGS (13)
  1. YAZ [Suspect]
     Indication: CONTRACEPTION
     Dosage: UNK
     Dates: start: 2002, end: 2006
  2. YAZ [Suspect]
     Indication: CONTRACEPTION
     Dosage: UNK
     Dates: start: 2006, end: 2009
  3. YASMIN [Suspect]
     Indication: CONTRACEPTION
     Dosage: UNK
     Dates: start: 2005, end: 2006
  4. YASMIN [Suspect]
     Indication: CONTRACEPTION
     Dosage: UNK
     Dates: start: 2004, end: 2006
  5. MULTI-VITAMIN [Concomitant]
     Indication: VITAMIN SUPPLEMENTATION
     Dosage: 1 A DAY
  6. ADVAIR DISKUS [Concomitant]
     Dosage: 250-50
  7. ALBUTEROL [Concomitant]
     Dosage: UNK, AS NEEDED
  8. RELPAX [Concomitant]
     Dosage: 40 MG, UNK
  9. PEPTO-BISMOL [Concomitant]
  10. PROVENTIL HFA [Concomitant]
     Dosage: 90MCG
     Route: 045
  11. AZITHROMYCIN [Concomitant]
     Dosage: 250 MG, UNK
  12. PREDNISONE [Concomitant]
     Dosage: 5 MG, UNK
  13. AMOXICILLIN TRIHYDRATE W/CLAVULANTE POTASSIUM [Concomitant]
     Dosage: 875-125MG

REACTIONS (7)
  - Gallbladder injury [None]
  - Pain [None]
  - General physical health deterioration [None]
  - Injury [None]
  - Emotional distress [None]
  - Pain [None]
  - Anxiety [None]
